FAERS Safety Report 6736012-2 (Version None)
Quarter: 2010Q2

REPORT INFORMATION
  Report Type: 
  Country: None (occurrence: None)
  Receive Date: 20100521
  Receipt Date: 20100512
  Transmission Date: 20101027
  Serious: Yes (Hospitalization, Other)
  Sender: FDA-Public Use
  Company Number: US-PURDUE-USA_2007_0027111

PATIENT
  Sex: Male
  Weight: 81.633 kg

DRUGS (1)
  1. OXYCONTIN [Suspect]
     Indication: ANALGESIC THERAPY
     Dosage: 40 MG, TID
     Dates: start: 19991103, end: 20040418

REACTIONS (7)
  - COMA [None]
  - DIABETES MELLITUS [None]
  - DRUG DEPENDENCE [None]
  - INADEQUATE ANALGESIA [None]
  - LIVER INJURY [None]
  - NERVE INJURY [None]
  - SKIN ULCER [None]
